FAERS Safety Report 9089846 (Version 1)
Quarter: 2013Q1

REPORT INFORMATION
  Report Type: Report from Study
  Country: US (occurrence: US)
  Receive Date: 20130131
  Receipt Date: 20130131
  Transmission Date: 20140127
  Serious: No
  Sender: FDA-Public Use
  Company Number: US-ABBOTT-12P-163-0994786-00

PATIENT
  Age: 58 Year
  Sex: Female
  Weight: 96.7 kg

DRUGS (22)
  1. HUMIRA [Suspect]
     Indication: RHEUMATOID ARTHRITIS
     Route: 058
     Dates: start: 20120913
  2. SYMBICORT [Concomitant]
     Indication: ASTHMA
  3. LEXAPRO [Concomitant]
     Indication: DEPRESSION
  4. NEXIUM [Concomitant]
     Indication: GASTROOESOPHAGEAL REFLUX DISEASE
  5. WELLBUTRIN [Concomitant]
     Indication: DEPRESSION
  6. FOLIC ACID [Concomitant]
     Indication: PRODUCT USED FOR UNKNOWN INDICATION
  7. OXYCONTIN [Concomitant]
     Indication: PAIN
  8. LYRICA [Concomitant]
     Indication: FIBROMYALGIA
  9. AMITIZA [Concomitant]
     Indication: IRRITABLE BOWEL SYNDROME
  10. METHOTREXATE [Concomitant]
     Indication: RHEUMATOID ARTHRITIS
  11. ZETIA [Concomitant]
     Indication: BLOOD CHOLESTEROL INCREASED
  12. SIMVASTATIN [Concomitant]
     Indication: BLOOD CHOLESTEROL INCREASED
  13. DETROL LA [Concomitant]
     Indication: URINARY TRACT DISORDER
  14. LISINOPRIL/HCTZ [Concomitant]
     Indication: HYPERTENSION
  15. REVATIO [Concomitant]
     Indication: PULMONARY HYPERTENSION
  16. DILTIAZEM [Concomitant]
     Indication: PALPITATIONS
  17. VITAMIN D [Concomitant]
     Indication: VITAMIN D DECREASED
  18. PROBIOTICS [Concomitant]
     Indication: DYSPEPSIA
  19. ONE A DAY [Concomitant]
     Indication: PRODUCT USED FOR UNKNOWN INDICATION
  20. COLACE [Concomitant]
     Indication: FAECES HARD
  21. AMPHETAMINE SALTS [Concomitant]
     Indication: PRODUCT USED FOR UNKNOWN INDICATION
  22. ZOLPIDEM [Concomitant]
     Indication: SLEEP DISORDER

REACTIONS (6)
  - Rhinorrhoea [Not Recovered/Not Resolved]
  - Nasopharyngitis [Not Recovered/Not Resolved]
  - Nasal congestion [Not Recovered/Not Resolved]
  - Cough [Not Recovered/Not Resolved]
  - Dyspnoea [Not Recovered/Not Resolved]
  - Cough [Not Recovered/Not Resolved]
